FAERS Safety Report 16103753 (Version 2)
Quarter: 2019Q2

REPORT INFORMATION
  Report Type: Spontaneous
  Country: FR (occurrence: FR)
  Receive Date: 20190322
  Receipt Date: 20190402
  Transmission Date: 20190711
  Serious: Yes (Hospitalization, Other)
  Sender: FDA-Public Use
  Company Number: FR-AUROBINDO-AUR-APL-2019-014798

PATIENT

DRUGS (3)
  1. BROMAZEPAM [Concomitant]
     Active Substance: BROMAZEPAM
     Indication: PRODUCT USED FOR UNKNOWN INDICATION
     Dosage: 40 MILLIGRAM, ONCE A DAY
     Route: 065
  2. VENLAFAXINE [Suspect]
     Active Substance: VENLAFAXINE HYDROCHLORIDE
     Indication: PRODUCT USED FOR UNKNOWN INDICATION
     Dosage: 3000 MILLIGRAM, ONCE A DAY
     Route: 048
  3. METHADONE [Concomitant]
     Active Substance: METHADONE HYDROCHLORIDE
     Indication: PRODUCT USED FOR UNKNOWN INDICATION
     Dosage: 30 MILLIGRAM, ONCE A DAY
     Route: 065

REACTIONS (13)
  - Abdominal pain [Unknown]
  - Overdose [Unknown]
  - Aggression [Unknown]
  - Intentional product misuse [Unknown]
  - Confusional state [Unknown]
  - Hallucination [Unknown]
  - Drug abuse [Unknown]
  - Hypertension [Unknown]
  - Acute kidney injury [Unknown]
  - Rhabdomyolysis [Unknown]
  - Blood creatine phosphokinase increased [Unknown]
  - Discomfort [Unknown]
  - Glomerular filtration rate decreased [Unknown]
